FAERS Safety Report 14148843 (Version 1)
Quarter: 2017Q4

REPORT INFORMATION
  Report Type: Spontaneous
  Country: RU (occurrence: RU)
  Receive Date: 20171101
  Receipt Date: 20171101
  Transmission Date: 20180321
  Serious: Yes (Hospitalization)
  Sender: FDA-Public Use
  Company Number: RU-BIOGEN-2017BI00467984

PATIENT
  Age: 53 Year

DRUGS (1)
  1. TYSABRI [Suspect]
     Active Substance: NATALIZUMAB
     Indication: MULTIPLE SCLEROSIS
     Route: 065
     Dates: end: 20170901

REACTIONS (5)
  - Optic neuritis [Unknown]
  - Paraplegia [Unknown]
  - Hypertonic bladder [Unknown]
  - Visual impairment [Unknown]
  - Constipation [Unknown]

NARRATIVE: CASE EVENT DATE: 20170910
